FAERS Safety Report 7676452-0 (Version None)
Quarter: 2011Q3

REPORT INFORMATION
  Report Type: 
  Country: None (occurrence: None)
  Receive Date: 20110809
  Receipt Date: 20110809
  Transmission Date: 20111222
  Serious: Yes (Hospitalization)
  Sender: FDA-Public Use
  Company Number: None

PATIENT
  Sex: Female

DRUGS (1)
  1. HYCAMTIN [Suspect]
     Indication: NEOPLASM MALIGNANT
     Dosage: 4 MG QD PO
     Route: 048

REACTIONS (1)
  - BLOOD COUNT ABNORMAL [None]
